FAERS Safety Report 6021156-3 (Version None)
Quarter: 2008Q4

REPORT INFORMATION
  Report Type: 
  Country: None (occurrence: None)
  Receive Date: 20081224
  Receipt Date: 20081224
  Transmission Date: 20090506
  Serious: No
  Sender: FDA-Public Use
  Company Number: None

PATIENT
  Age: 83 Year
  Sex: Male
  Weight: 74.39 kg

DRUGS (1)
  1. VARENICLINE [Suspect]
     Indication: SMOKING CESSATION THERAPY
     Dosage: 1 TAB EVERY DAY PO
     Route: 048
     Dates: start: 20070801, end: 20070806

REACTIONS (3)
  - PRURITUS [None]
  - RASH [None]
  - URTICARIA [None]
